FAERS Safety Report 6649207-3 (Version None)
Quarter: 2010Q1

REPORT INFORMATION
  Report Type: 
  Country: None (occurrence: None)
  Receive Date: 20100324
  Receipt Date: 20100317
  Transmission Date: 20100710
  Serious: Yes (Other)
  Sender: FDA-Public Use
  Company Number: B0642494A

PATIENT
  Age: 7 Year
  Sex: Female

DRUGS (2)
  1. AUGMENTIN [Suspect]
     Indication: ACUTE TONSILLITIS
     Dosage: 800MG PER DAY
     Route: 065
     Dates: start: 20100303, end: 20100305
  2. CETIRIZINE HCL [Concomitant]
     Dosage: 10DROP PER DAY
     Dates: start: 20100301, end: 20100305

REACTIONS (5)
  - ASTHENIA [None]
  - BODY TEMPERATURE DECREASED [None]
  - COLD SWEAT [None]
  - LEUKOPENIA [None]
  - MONOCYTOSIS [None]
